FAERS Safety Report 16056128 (Version 1)
Quarter: 2019Q2

REPORT INFORMATION
  Report Type: Spontaneous
  Country: US (occurrence: US)
  Receive Date: 20190308
  Receipt Date: 20190308
  Transmission Date: 20190711
  Serious: Yes (Hospitalization)
  Sender: FDA-Public Use
  Company Number: None

PATIENT
  Age: 16 Year
  Sex: Male

DRUGS (8)
  1. FLUCONAZOLE. [Concomitant]
     Active Substance: FLUCONAZOLE
  2. POT CL MICRO [Concomitant]
  3. SPIRONOLACT [Concomitant]
     Active Substance: SPIRONOLACTONE
  4. CLINDAMYCIN. [Concomitant]
     Active Substance: CLINDAMYCIN
  5. CEFDINIR. [Concomitant]
     Active Substance: CEFDINIR
  6. MONTELUKAST [Concomitant]
     Active Substance: MONTELUKAST SODIUM
  7. GAMMAGARD [Suspect]
     Active Substance: HUMAN IMMUNOGLOBULIN G
     Indication: IMMUNODEFICIENCY
     Dosage: ?          OTHER FREQUENCY:EVERY 3 WEEKS;?
     Route: 042
     Dates: start: 20180113
  8. URSODIOL. [Concomitant]
     Active Substance: URSODIOL

REACTIONS (1)
  - Abscess [None]
